FAERS Safety Report 13857538 (Version 1)
Quarter: 2017Q3

REPORT INFORMATION
  Report Type: Spontaneous
  Country: SG (occurrence: SG)
  Receive Date: 20170811
  Receipt Date: 20170811
  Transmission Date: 20171127
  Serious: Yes (Other)
  Sender: FDA-Public Use
  Company Number: PHHY2017SG114707

PATIENT
  Age: 63 Year
  Sex: Female

DRUGS (4)
  1. NITROGLYCERIN. [Suspect]
     Active Substance: NITROGLYCERIN
     Indication: ANGINA UNSTABLE
     Dosage: UNK
     Route: 065
  2. ARGATROBAN. [Suspect]
     Active Substance: ARGATROBAN
     Indication: HEPARIN-INDUCED THROMBOCYTOPENIA
     Dosage: UNK (2MICROG/KG/MIN)
     Route: 065
  3. HEPARIN SODIUM. [Suspect]
     Active Substance: HEPARIN SODIUM
     Indication: ANTICOAGULANT THERAPY
     Dosage: UNK
     Route: 042
  4. ENOXAPARIN SODIUM. [Suspect]
     Active Substance: ENOXAPARIN SODIUM
     Indication: CORONARY ARTERY DISEASE
     Dosage: UNK
     Route: 065

REACTIONS (2)
  - Activated partial thromboplastin time prolonged [Unknown]
  - Haemoglobin decreased [Recovering/Resolving]
